FAERS Safety Report 9452619 (Version 1)
Quarter: 2013Q3

REPORT INFORMATION
  Report Type: Spontaneous
  Country: US (occurrence: US)
  Receive Date: 20130812
  Receipt Date: 20130812
  Transmission Date: 20140515
  Serious: No
  Sender: FDA-Public Use
  Company Number: US-BAYER-2013-095660

PATIENT
  Age: 54 Year
  Sex: Female

DRUGS (4)
  1. MIRENA [Suspect]
     Indication: HORMONE THERAPY
     Dosage: 20 MCG/24HR, CONT
     Route: 015
     Dates: start: 20130225
  2. VIVELLE [ESTRADIOL] [Concomitant]
  3. ESTRACE [Concomitant]
  4. TESTOSTERON [Concomitant]
     Dosage: 10 MG, UNK

REACTIONS (4)
  - Weight increased [None]
  - Abdominal distension [None]
  - Breast tenderness [None]
  - Feeling abnormal [None]
